FAERS Safety Report 8169425-5 (Version None)
Quarter: 2012Q1

REPORT INFORMATION
  Report Type: 
  Country: None (occurrence: None)
  Receive Date: 20120228
  Receipt Date: 20120222
  Transmission Date: 20120608
  Serious: Yes (Other)
  Sender: FDA-Public Use
  Company Number: IT-TEVA-314611ISR

PATIENT
  Age: 48 Year
  Sex: Female

DRUGS (3)
  1. VINORELBINE TARTRATE [Suspect]
  2. GEMCITABINE [Suspect]
  3. DOXORUBICIN HCL [Suspect]

REACTIONS (1)
  - TOXIC EPIDERMAL NECROLYSIS [None]
